FAERS Safety Report 24813772 (Version 5)
Quarter: 2025Q2

REPORT INFORMATION
  Report Type: Report from Study
  Country: US (occurrence: US)
  Receive Date: 20250107
  Receipt Date: 20250610
  Transmission Date: 20250717
  Serious: Yes (Hospitalization, Other)
  Sender: ABBVIE
  Company Number: US-ABBVIE-6070043

PATIENT
  Age: 93 Year
  Sex: Female
  Weight: 73 kg

DRUGS (21)
  1. LUMIGAN [Suspect]
     Active Substance: BIMATOPROST
     Indication: Glaucoma
     Route: 047
     Dates: start: 202109
  2. LUMIGAN [Suspect]
     Active Substance: BIMATOPROST
     Route: 047
  3. LUMIGAN [Suspect]
     Active Substance: BIMATOPROST
     Dosage: 1 DROP EVERY NIGHT AT BEDTIME IN BOTH EYES. 0.01%
     Route: 047
     Dates: start: 20090425, end: 202109
  4. ELIQUIS [Concomitant]
     Active Substance: APIXABAN
     Indication: Anticoagulant therapy
     Route: 048
  5. LASIX [Concomitant]
     Active Substance: FUROSEMIDE
     Indication: Cardiac failure
     Route: 048
  6. COLACE [Concomitant]
     Active Substance: DOCUSATE SODIUM
     Indication: Product used for unknown indication
  7. AMIODARONE [Concomitant]
     Active Substance: AMIODARONE
     Indication: Product used for unknown indication
  8. SINGULAIR [Concomitant]
     Active Substance: MONTELUKAST SODIUM
     Indication: Chronic obstructive pulmonary disease
  9. ROSUVASTATIN [Concomitant]
     Active Substance: ROSUVASTATIN
     Indication: Product used for unknown indication
     Route: 048
  10. FUROSEMIDE [Concomitant]
     Active Substance: FUROSEMIDE
     Indication: Product used for unknown indication
  11. COSOPT [Concomitant]
     Active Substance: DORZOLAMIDE HYDROCHLORIDE\TIMOLOL MALEATE
     Indication: Product used for unknown indication
     Route: 065
  12. POTASSIUM [Concomitant]
     Active Substance: POTASSIUM
     Indication: Product used for unknown indication
  13. PRAVASTATIN [Concomitant]
     Active Substance: PRAVASTATIN
     Indication: Product used for unknown indication
     Route: 065
  14. FOLIC ACID [Concomitant]
     Active Substance: FOLIC ACID
     Indication: Product used for unknown indication
     Route: 065
  15. METOPROLOL [Concomitant]
     Active Substance: METOPROLOL
     Indication: Hypertension
  16. VITAMIN B12 [Concomitant]
     Active Substance: CYANOCOBALAMIN
     Indication: Product used for unknown indication
     Route: 065
  17. CRESTOR [Concomitant]
     Active Substance: ROSUVASTATIN CALCIUM
     Indication: Blood cholesterol increased
  18. VITAMIN D2 [Concomitant]
     Active Substance: ERGOCALCIFEROL
     Indication: Product used for unknown indication
     Route: 065
  19. TIMOLOL [Concomitant]
     Active Substance: TIMOLOL
     Indication: Product used for unknown indication
  20. PROAIR HFA [Concomitant]
     Active Substance: ALBUTEROL SULFATE
     Indication: Product used for unknown indication
  21. VITAMIN D3 [Concomitant]
     Active Substance: CHOLECALCIFEROL
     Indication: Product used for unknown indication

REACTIONS (23)
  - Fall [Recovering/Resolving]
  - Coronary artery occlusion [Recovering/Resolving]
  - Mobility decreased [Not Recovered/Not Resolved]
  - Deafness [Recovering/Resolving]
  - Hypoaesthesia [Recovering/Resolving]
  - Dyspnoea [Recovering/Resolving]
  - Injury [Unknown]
  - Gait disturbance [Recovering/Resolving]
  - Cardiac failure [Recovering/Resolving]
  - Hemiparesis [Recovering/Resolving]
  - Head injury [Recovering/Resolving]
  - Glaucoma [Unknown]
  - Intraocular pressure increased [Unknown]
  - Pseudophakia [Unknown]
  - Chronic obstructive pulmonary disease [Recovering/Resolving]
  - Visual impairment [Unknown]
  - Dacryocystitis [Unknown]
  - Chalazion [Recovering/Resolving]
  - Lacrimation increased [Unknown]
  - Facial spasm [Unknown]
  - Therapeutic product effect incomplete [Unknown]
  - COVID-19 [Unknown]
  - Cerebrovascular accident [Unknown]

NARRATIVE: CASE EVENT DATE: 20201001
